FAERS Safety Report 10673585 (Version 1)
Quarter: 2014Q4

REPORT INFORMATION
  Report Type: Spontaneous
  Country: IT (occurrence: None)
  Receive Date: 20141222
  Receipt Date: 20141222
  Transmission Date: 20150529
  Serious: Yes (Death)
  Sender: FDA-Public Use
  Company Number: INT_00558_2014

PATIENT
  Age: 67 Year
  Sex: Female

DRUGS (3)
  1. CISPLATIN (CISPLATIN) (HQ SPECIALTY) [Suspect]
     Active Substance: CISPLATIN
     Indication: NON-SMALL CELL LUNG CANCER
  2. PEMETREXED (PEMETREXED) [Suspect]
     Active Substance: PEMETREXED
     Indication: NON-SMALL CELL LUNG CANCER
     Dosage: 1X/3 WEEKS
  3. BEVACIZUMAB (BEVACIZUMAB) [Suspect]
     Active Substance: BEVACIZUMAB
     Indication: NON-SMALL CELL LUNG CANCER
     Dosage: 1X/3 WEEKS, INFUSED OVER 30-90 MIN

REACTIONS (5)
  - Dehydration [None]
  - Coma [None]
  - Diarrhoea [None]
  - Pneumonia aspiration [None]
  - Vomiting [None]
